FAERS Safety Report 17773518 (Version 2)
Quarter: 2020Q2

REPORT INFORMATION
  Report Type: Spontaneous
  Country: US (occurrence: US)
  Receive Date: 20200513
  Receipt Date: 20200612
  Transmission Date: 20200714
  Serious: No
  Sender: FDA-Public Use
  Company Number: US-ASTRAZENECA-2020SE57524

PATIENT
  Sex: Female
  Weight: 89.4 kg

DRUGS (2)
  1. BYDUREON [Suspect]
     Active Substance: EXENATIDE
     Indication: GLYCOSYLATED HAEMOGLOBIN ABNORMAL
     Route: 058
     Dates: start: 201707
  2. BYDUREON [Suspect]
     Active Substance: EXENATIDE
     Indication: TYPE 2 DIABETES MELLITUS
     Route: 058
     Dates: start: 201707

REACTIONS (4)
  - Incorrect dose administered by device [Unknown]
  - Device issue [Unknown]
  - Diarrhoea [Unknown]
  - Injection site pain [Unknown]
